APPROVED DRUG PRODUCT: TRAMADOL HYDROCHLORIDE AND ACETAMINOPHEN
Active Ingredient: ACETAMINOPHEN; TRAMADOL HYDROCHLORIDE
Strength: 325MG;37.5MG
Dosage Form/Route: TABLET;ORAL
Application: A207152 | Product #001 | TE Code: AB
Applicant: AUROBINDO PHARMA LTD
Approved: Mar 22, 2017 | RLD: No | RS: No | Type: RX